FAERS Safety Report 6374429-9 (Version None)
Quarter: 2009Q3

REPORT INFORMATION
  Report Type: 
  Country: None (occurrence: None)
  Receive Date: 20090924
  Receipt Date: 20090910
  Transmission Date: 20100115
  Serious: Yes (Hospitalization, Other)
  Sender: FDA-Public Use
  Company Number: JP-PFIZER INC-2009260535

PATIENT
  Age: 19 Year

DRUGS (5)
  1. GABAPEN [Suspect]
     Dosage: 1200 MG, 1X/DAY
     Route: 048
     Dates: start: 20090814
  2. GABAPEN [Suspect]
     Dosage: UNK
     Dates: start: 20090813
  3. PHENYTOIN AND PHENYTOIN SODIUM [Suspect]
     Dosage: UNK
     Route: 048
     Dates: start: 20060301, end: 20090819
  4. RIVOTRIL [Suspect]
     Dosage: 0.5 MG, 3X/DAY
     Route: 048
     Dates: start: 20041001, end: 20090825
  5. ALEVIATIN [Concomitant]
     Dosage: UNK
     Route: 048
     Dates: start: 20050901

REACTIONS (5)
  - ANTICONVULSANT DRUG LEVEL DECREASED [None]
  - CLONIC CONVULSION [None]
  - EPILEPSY [None]
  - GRAND MAL CONVULSION [None]
  - THERAPEUTIC AGENT TOXICITY [None]
